FAERS Safety Report 9822353 (Version 1)
Quarter: 2014Q1

REPORT INFORMATION
  Report Type: Spontaneous
  Country: CA (occurrence: CA)
  Receive Date: 20140116
  Receipt Date: 20140116
  Transmission Date: 20141002
  Serious: Yes (Other)
  Sender: FDA-Public Use
  Company Number: CA-009507513-1401CAN005444

PATIENT
  Age: 19 Year
  Sex: Female

DRUGS (3)
  1. JANUMET [Suspect]
     Dosage: 1 DF, BID
     Route: 048
  2. PANTOLOC [Concomitant]
     Route: 065
  3. VALACYCLOVIR HYDROCHLORIDE [Concomitant]
     Route: 065

REACTIONS (2)
  - Lipase increased [Recovered/Resolved]
  - Abdominal pain [Recovered/Resolved]
